FAERS Safety Report 23530028 (Version 2)
Quarter: 2024Q1

REPORT INFORMATION
  Report Type: Report from Study
  Country: US (occurrence: US)
  Receive Date: 20240216
  Receipt Date: 20240227
  Transmission Date: 20240409
  Serious: Yes (Other)
  Sender: FDA-Public Use
  Company Number: US-ARGENX-2023-ARGX-US002796

PATIENT

DRUGS (2)
  1. VYVGART [Suspect]
     Active Substance: EFGARTIGIMOD ALFA-FCAB
     Indication: Myasthenia gravis
     Dosage: 10 MG/KG
     Route: 042
  2. VYVGART [Suspect]
     Active Substance: EFGARTIGIMOD ALFA-FCAB
     Dosage: 530 MG
     Route: 042

REACTIONS (29)
  - Choking [Unknown]
  - Oropharyngeal pain [Unknown]
  - Pain [Unknown]
  - Ear pain [Unknown]
  - Feeling abnormal [Unknown]
  - Dysphagia [Unknown]
  - Fatigue [Unknown]
  - Pharyngitis streptococcal [Unknown]
  - Night sweats [Unknown]
  - Cough [Unknown]
  - Urine odour abnormal [Unknown]
  - Stress [Unknown]
  - Feeling drunk [Not Recovered/Not Resolved]
  - Gait disturbance [Not Recovered/Not Resolved]
  - Depression [Unknown]
  - Road traffic accident [Unknown]
  - Neck pain [Unknown]
  - Pain in jaw [Unknown]
  - Weight decreased [Unknown]
  - Oropharyngeal discomfort [Not Recovered/Not Resolved]
  - Retching [Unknown]
  - Thyroid mass [Unknown]
  - Blood cholesterol increased [Unknown]
  - Cough [Not Recovered/Not Resolved]
  - Myasthenia gravis [Not Recovered/Not Resolved]
  - Asthenia [Unknown]
  - Therapeutic product ineffective [Unknown]
  - Therapy non-responder [Not Recovered/Not Resolved]
  - Inappropriate schedule of product administration [Unknown]

NARRATIVE: CASE EVENT DATE: 20231123
